FAERS Safety Report 22378065 (Version 7)
Quarter: 2024Q3

REPORT INFORMATION
  Report Type: Spontaneous
  Country: DE (occurrence: DE)
  Receive Date: 20230529
  Receipt Date: 20240723
  Transmission Date: 20241016
  Serious: Yes (Other)
  Sender: AUROBINDO
  Company Number: DE-PEI-CADR2022267598

PATIENT
  Age: 62 Year
  Sex: Female
  Weight: 96 kg

DRUGS (17)
  1. LEVETIRACETAM [Suspect]
     Active Substance: LEVETIRACETAM
     Indication: Product used for unknown indication
     Dosage: 2 MILLILITER, ONCE A DAY
     Route: 065
     Dates: start: 201603
  2. LEVETIRACETAM [Suspect]
     Active Substance: LEVETIRACETAM
     Dosage: 7.5 ML-10ML
     Route: 048
     Dates: start: 2018
  3. LEVETIRACETAM [Suspect]
     Active Substance: LEVETIRACETAM
     Dosage: 10 MILLILITER, ONCE A DAY
     Route: 048
     Dates: start: 201801
  4. LEVETIRACETAM [Suspect]
     Active Substance: LEVETIRACETAM
     Dosage: 2 MILLILITER, ONCE A DAY
     Route: 048
     Dates: start: 201802
  5. LEVETIRACETAM [Suspect]
     Active Substance: LEVETIRACETAM
     Dosage: 17.5 ML, DAILY (7.5ML - 10ML - 0ML)
     Route: 065
  6. CINNARIZINE\DIMENHYDRINATE [Suspect]
     Active Substance: CINNARIZINE\DIMENHYDRINATE
     Indication: Dizziness
     Dosage: UNK, 3 TIMES A DAY (1 - 1 - 1 - 0)
     Route: 065
     Dates: start: 20220202
  7. COMIRNATY (TOZINAMERAN) [Suspect]
     Active Substance: TOZINAMERAN
     Indication: COVID-19 immunisation
     Dosage: DOSE 1, SINGLE
     Route: 030
     Dates: start: 20210609, end: 20210609
  8. COMIRNATY (TOZINAMERAN) [Suspect]
     Active Substance: TOZINAMERAN
     Dosage: 0.3 MILLILITER, 1 TOTAL (DOSE 2, 0.3 ML SINGLE  )
     Route: 030
     Dates: start: 20210707, end: 20210707
  9. CHOLECALCIFEROL [Concomitant]
     Active Substance: CHOLECALCIFEROL
     Indication: Product used for unknown indication
     Dosage: 2 DOSAGE FORM, EVERY WEEK
     Route: 065
  10. CHOLECALCIFEROL [Concomitant]
     Active Substance: CHOLECALCIFEROL
     Dosage: 20000 INTERNATIONAL UNIT, AS NECESSARY
     Route: 065
     Dates: start: 2015
  11. FOLSAEURE STADA [Concomitant]
     Indication: Product used for unknown indication
     Dosage: 5 MILLIGRAM, AS NECESSARY
     Route: 065
     Dates: start: 2015
  12. FOLSAEURE STADA [Concomitant]
     Dosage: 2 DOSAGE FORM, ONCE A DAY
     Route: 065
     Dates: start: 201601
  13. FOLSAEURE STADA [Concomitant]
     Dosage: 1 DOSAGE FORM, ONCE A DAY
     Route: 065
     Dates: start: 201602
  14. MAGNESIUM [Concomitant]
     Active Substance: MAGNESIUM
     Indication: Product used for unknown indication
     Dosage: UNK (1X/DAY (0-0-1-0))
     Route: 065
     Dates: start: 2015
  15. PANTOPRAZOLE [Concomitant]
     Active Substance: PANTOPRAZOLE
     Indication: Product used for unknown indication
     Dosage: 40 MILLIGRAM, ONCE A DAY (40 MG, 1X/DAY (0-0-1-0))
     Route: 065
     Dates: start: 2015
  16. RAMIPRIL [Concomitant]
     Active Substance: RAMIPRIL
     Indication: Product used for unknown indication
     Dosage: 2.5 MG, 1X/DAY (1-0-0-0)
     Route: 065
     Dates: start: 2022
  17. XARELTO [Concomitant]
     Active Substance: RIVAROXABAN
     Indication: Product used for unknown indication
     Dosage: 20 MG, 1X/DAY (1-0-0-0)
     Route: 065
     Dates: start: 2022

REACTIONS (53)
  - Arrhythmia [Not Recovered/Not Resolved]
  - Atrial fibrillation [Not Recovered/Not Resolved]
  - Cardiac failure [Not Recovered/Not Resolved]
  - Cardiomyopathy [Not Recovered/Not Resolved]
  - Condition aggravated [Unknown]
  - COVID-19 [Unknown]
  - Depressed level of consciousness [Not Recovered/Not Resolved]
  - Leukopenia [Unknown]
  - Nasal septum deviation [Unknown]
  - Oral papilloma [Unknown]
  - Respiratory failure [Not Recovered/Not Resolved]
  - Tricuspid valve incompetence [Not Recovered/Not Resolved]
  - Vaccination failure [Unknown]
  - Aphasia [Not Recovered/Not Resolved]
  - Arthralgia [Not Recovered/Not Resolved]
  - Asthenia [Unknown]
  - Blood pressure abnormal [Not Recovered/Not Resolved]
  - Brain fog [Unknown]
  - Chronic fatigue syndrome [Unknown]
  - Disturbance in attention [Unknown]
  - Dizziness [Not Recovered/Not Resolved]
  - Dyspnoea [Not Recovered/Not Resolved]
  - Dyspnoea exertional [Unknown]
  - Electric shock sensation [Unknown]
  - Fall [Unknown]
  - Fatigue [Not Recovered/Not Resolved]
  - Fibrin D dimer increased [Unknown]
  - Headache [Not Recovered/Not Resolved]
  - Hypersomnia [Unknown]
  - Hypertension [Unknown]
  - Intervertebral disc protrusion [Unknown]
  - Limb discomfort [Not Recovered/Not Resolved]
  - Listless [Unknown]
  - Lymphadenitis [Unknown]
  - Lymphopenia [Unknown]
  - Malaise [Not Recovered/Not Resolved]
  - Memory impairment [Not Recovered/Not Resolved]
  - Mood swings [Unknown]
  - Movement disorder [Unknown]
  - Muscle spasms [Not Recovered/Not Resolved]
  - Myalgia [Not Recovered/Not Resolved]
  - Neuralgia [Not Recovered/Not Resolved]
  - Nervous system disorder [Not Recovered/Not Resolved]
  - N-terminal prohormone brain natriuretic peptide increased [Unknown]
  - Pain [Not Recovered/Not Resolved]
  - Pain in extremity [Not Recovered/Not Resolved]
  - Palpitations [Unknown]
  - Paraesthesia [Not Recovered/Not Resolved]
  - Performance status decreased [Unknown]
  - Post vaccination syndrome [Unknown]
  - Somnolence [Unknown]
  - Vaccination site pain [Recovered/Resolved]
  - Vertigo [Unknown]

NARRATIVE: CASE EVENT DATE: 20210701
